FAERS Safety Report 12472727 (Version 2)
Quarter: 2020Q1

REPORT INFORMATION
  Report Type: Spontaneous
  Country: US (occurrence: US)
  Receive Date: 20160616
  Receipt Date: 20200317
  Transmission Date: 20200409
  Serious: No
  Sender: FDA-Public Use
  Company Number: US-JAZZ-2015-US-019844

PATIENT
  Age: 33 Year
  Sex: Female

DRUGS (9)
  1. XYREM [Suspect]
     Active Substance: SODIUM OXYBATE
     Indication: NARCOLEPSY
     Dosage: 2.25 G, BID
     Route: 048
     Dates: start: 201511
  2. TYLENOL ARTHRITIS PAIN [Concomitant]
     Active Substance: ACETAMINOPHEN
     Indication: PRODUCT USED FOR UNKNOWN INDICATION
     Dosage: UNK
     Dates: start: 20151112
  3. XYREM [Suspect]
     Active Substance: SODIUM OXYBATE
     Dosage: 2.25 G, BID
     Route: 048
  4. IBUPROFEN. [Concomitant]
     Active Substance: IBUPROFEN
     Indication: PRODUCT USED FOR UNKNOWN INDICATION
     Dosage: UNK
     Dates: start: 20151112
  5. MELATONIN [Concomitant]
     Active Substance: MELATONIN
     Indication: PRODUCT USED FOR UNKNOWN INDICATION
     Dosage: UNK
     Dates: start: 20151027
  6. RITALIN [Concomitant]
     Active Substance: METHYLPHENIDATE HYDROCHLORIDE
     Indication: PRODUCT USED FOR UNKNOWN INDICATION
     Dosage: UNK
     Dates: start: 20151027
  7. XYREM [Suspect]
     Active Substance: SODIUM OXYBATE
     Dosage: UNKNOWN INCREASED DOSE
     Route: 048
  8. CITRACAL-D [Concomitant]
     Active Substance: CALCIUM CITRATE\CHOLECALCIFEROL
     Indication: PRODUCT USED FOR UNKNOWN INDICATION
     Dosage: UNK
     Dates: start: 20151112
  9. FERROUS SULFATE. [Concomitant]
     Active Substance: FERROUS SULFATE
     Indication: PRODUCT USED FOR UNKNOWN INDICATION
     Dosage: UNK
     Dates: start: 20151112

REACTIONS (16)
  - Asthenopia [Not Recovered/Not Resolved]
  - Pallor [Unknown]
  - Feeling abnormal [Not Recovered/Not Resolved]
  - Amnesia [Not Recovered/Not Resolved]
  - Somnolence [Unknown]
  - Emotional disorder [Not Recovered/Not Resolved]
  - Influenza [Unknown]
  - Dizziness [Not Recovered/Not Resolved]
  - Night sweats [Not Recovered/Not Resolved]
  - Hypoaesthesia oral [Not Recovered/Not Resolved]
  - Arthralgia [Not Recovered/Not Resolved]
  - Head discomfort [Not Recovered/Not Resolved]
  - Musculoskeletal chest pain [Unknown]
  - Joint stiffness [Not Recovered/Not Resolved]
  - Migraine [Unknown]
  - Anxiety [Not Recovered/Not Resolved]

NARRATIVE: CASE EVENT DATE: 201511
